FAERS Safety Report 16361215 (Version 2)
Quarter: 2019Q2

REPORT INFORMATION
  Report Type: Spontaneous
  Country: DE (occurrence: DE)
  Receive Date: 20190528
  Receipt Date: 20190531
  Transmission Date: 20190711
  Serious: Yes (Hospitalization, Other)
  Sender: FDA-Public Use
  Company Number: DE-MYLANLABS-2019M1049412

PATIENT
  Age: 39 Year
  Sex: Female

DRUGS (1)
  1. QUETIAPINE. [Suspect]
     Active Substance: QUETIAPINE
     Indication: PSYCHOTIC DISORDER
     Dosage: 800 MILLIGRAM, QD
     Route: 048

REACTIONS (4)
  - Cardiogenic shock [Recovered/Resolved]
  - Pericardial effusion [Recovered/Resolved]
  - Cardiomyopathy [Recovered/Resolved]
  - Cardiac failure [Recovered/Resolved]
